FAERS Safety Report 7494927-4 (Version None)
Quarter: 2011Q2

REPORT INFORMATION
  Report Type: 
  Country: None (occurrence: None)
  Receive Date: 20110520
  Receipt Date: 20110509
  Transmission Date: 20111010
  Serious: Yes (Hospitalization)
  Sender: FDA-Public Use
  Company Number: FR-UCBSA-032428

PATIENT
  Sex: Male

DRUGS (2)
  1. CIMZIA [Suspect]
     Route: 058
     Dates: start: 20101201, end: 20110308
  2. CIMZIA [Suspect]
     Route: 058
     Dates: start: 20101105, end: 20101201

REACTIONS (8)
  - STAPHYLOCOCCAL INFECTION [None]
  - PHOTOPHOBIA [None]
  - WEIGHT DECREASED [None]
  - VOMITING [None]
  - PSOAS ABSCESS [None]
  - DIARRHOEA [None]
  - INTERVERTEBRAL DISCITIS [None]
  - DEPRESSION [None]
